FAERS Safety Report 14301158 (Version 1)
Quarter: 2017Q4

REPORT INFORMATION
  Report Type: Spontaneous
  Country: IL (occurrence: IL)
  Receive Date: 20171219
  Receipt Date: 20171219
  Transmission Date: 20180321
  Serious: Yes (Other)
  Sender: FDA-Public Use
  Company Number: IL-TEVA-2017-IL-832987

PATIENT
  Sex: Female

DRUGS (1)
  1. CARBOPLATIN CONCENTRATE FOR SOLUTION FOR INFUSION10MG/ML [Suspect]
     Active Substance: CARBOPLATIN

REACTIONS (2)
  - Emotional disorder [Unknown]
  - Loss of consciousness [Unknown]
